FAERS Safety Report 8978003 (Version 2)
Quarter: 2013Q3

REPORT INFORMATION
  Report Type: Spontaneous
  Country: GB (occurrence: GB)
  Receive Date: 20121219
  Receipt Date: 20130816
  Transmission Date: 20140515
  Serious: Yes (Other)
  Sender: FDA-Public Use
  Company Number: GB-NOVOPROD-366797

PATIENT
  Age: 74 Year
  Sex: Male

DRUGS (3)
  1. NOVOMIX 30 [Suspect]
     Indication: DIABETES MELLITUS
     Dosage: INCREASED FROM 10-140 UNITS BD
     Route: 065
  2. NOVORAPID [Concomitant]
     Indication: DIABETES MELLITUS
     Dosage: 140 IU, QD 60/40/40
     Route: 065
  3. LEVEMIR [Concomitant]
     Indication: DIABETES MELLITUS
     Dosage: 160 IU, QD AT NIGHT
     Route: 065

REACTIONS (1)
  - Vascular calcification [Unknown]
